FAERS Safety Report 9986429 (Version 1)
Quarter: 2014Q1

REPORT INFORMATION
  Report Type: Report from Study
  Country: US (occurrence: US)
  Receive Date: 20140307
  Receipt Date: 20140307
  Transmission Date: 20141002
  Serious: No
  Sender: FDA-Public Use
  Company Number: US-ABBVIE-13P-163-1086196-00

PATIENT
  Age: 61 Year
  Sex: Male

DRUGS (2)
  1. HUMIRA [Suspect]
     Indication: PSORIATIC ARTHROPATHY
     Dates: start: 20130405, end: 20130426
  2. ALEVE [Concomitant]
     Indication: PAIN

REACTIONS (2)
  - Restless legs syndrome [Not Recovered/Not Resolved]
  - Vision blurred [Not Recovered/Not Resolved]
